FAERS Safety Report 8311097 (Version 6)
Quarter: 2017Q4

REPORT INFORMATION
  Report Type: Spontaneous
  Country: US (occurrence: US)
  Receive Date: 20111227
  Receipt Date: 20171013
  Transmission Date: 20180321
  Serious: Yes (Hospitalization, Disabling, Other)
  Sender: FDA-Public Use
  Company Number: US-BAYER-2011-121728

PATIENT
  Age: 72 Year
  Sex: Male
  Weight: 192 kg

DRUGS (3)
  1. AVELOX [Suspect]
     Active Substance: MOXIFLOXACIN HYDROCHLORIDE
     Indication: PNEUMONIA
  2. PREDNISONE. [Suspect]
     Active Substance: PREDNISONE
     Indication: PNEUMONIA
     Dosage: UNK
     Dates: start: 200912, end: 201002
  3. AVELOX [Suspect]
     Active Substance: MOXIFLOXACIN HYDROCHLORIDE
     Indication: PNEUMONIA
     Dosage: UNK
     Dates: start: 200911, end: 201002

REACTIONS (8)
  - Arthralgia [None]
  - Arthralgia [Not Recovered/Not Resolved]
  - Arthritis [None]
  - Hypoaesthesia [None]
  - Back pain [None]
  - Peripheral nerve injury [None]
  - Pneumonia [Not Recovered/Not Resolved]
  - Arthralgia [None]

NARRATIVE: CASE EVENT DATE: 201003
